FAERS Safety Report 9003730 (Version 1)
Quarter: 2013Q1

REPORT INFORMATION
  Report Type: Spontaneous
  Country: US (occurrence: US)
  Receive Date: 20130108
  Receipt Date: 20130108
  Transmission Date: 20140127
  Serious: No
  Sender: FDA-Public Use
  Company Number: US-GLAXOSMITHKLINE-A0969139A

PATIENT
  Sex: Female

DRUGS (15)
  1. LOVAZA [Suspect]
     Indication: BLOOD CHOLESTEROL
     Dosage: 4CAP PER DAY
     Route: 048
     Dates: start: 2006
  2. NIASPAN [Concomitant]
  3. METOPROLOL [Concomitant]
  4. IMDUR [Concomitant]
  5. ASPIRIN [Concomitant]
  6. NORVASC [Concomitant]
  7. SINGULAIR [Concomitant]
  8. MULTIVITAMIN [Concomitant]
  9. FIBER PILL [Concomitant]
  10. TRAVATAN [Concomitant]
  11. SUDAFED [Concomitant]
  12. FLUTICASONE NASAL SPRAY [Concomitant]
  13. EAR DROPS [Concomitant]
  14. FLEXERIL [Concomitant]
  15. NITROGLYCERIN [Concomitant]

REACTIONS (3)
  - Low density lipoprotein decreased [Not Recovered/Not Resolved]
  - Sluggishness [Unknown]
  - Fatigue [Unknown]
